FAERS Safety Report 7371043-3 (Version None)
Quarter: 2011Q1

REPORT INFORMATION
  Report Type: 
  Country: None (occurrence: None)
  Receive Date: 20110318
  Receipt Date: 20110318
  Transmission Date: 20110831
  Serious: Yes (Life-Threatening, Hospitalization, Other)
  Sender: FDA-Public Use
  Company Number: None

PATIENT
  Age: 62 Year
  Sex: Female
  Weight: 77.1115 kg

DRUGS (1)
  1. AMBIEN [Suspect]
     Indication: INSOMNIA
     Dosage: PO
     Route: 048

REACTIONS (4)
  - MEMORY IMPAIRMENT [None]
  - FALL [None]
  - HAEMORRHAGE [None]
  - UPPER LIMB FRACTURE [None]
